FAERS Safety Report 24956779 (Version 1)
Quarter: 2025Q1

REPORT INFORMATION
  Report Type: Spontaneous
  Country: US (occurrence: None)
  Receive Date: 20250206
  Receipt Date: 20250206
  Transmission Date: 20250409
  Serious: Yes (Disabling)
  Sender: FDA-CTU
  Company Number: None

PATIENT
  Age: 68 Year
  Sex: Female

DRUGS (1)
  1. TISSUEBLUE [Suspect]
     Active Substance: BRILLIANT BLUE G
     Indication: Macular hole
     Route: 031
     Dates: start: 20250123, end: 20250123

REACTIONS (2)
  - Retinal disorder [None]
  - Injection site discolouration [None]

NARRATIVE: CASE EVENT DATE: 20250123
